FAERS Safety Report 13518810 (Version 5)
Quarter: 2018Q2

REPORT INFORMATION
  Report Type: Spontaneous
  Country: CH (occurrence: CH)
  Receive Date: 20170505
  Receipt Date: 20180607
  Transmission Date: 20180711
  Serious: Yes (Other)
  Sender: FDA-Public Use
  Company Number: CH-PFIZER INC-2017191223

PATIENT
  Sex: Male
  Weight: 2.45 kg

DRUGS (10)
  1. MILRINONE [Concomitant]
     Active Substance: MILRINONE
     Indication: CARDIAC DISORDER
     Dosage: 0.5 UG/KG/MIN,
  2. CARVEDILOL. [Interacting]
     Active Substance: CARVEDILOL
     Indication: SINUS TACHYCARDIA
     Dosage: 0.04 MG/KG/DOSE, TWICE A DAY
  3. GENTAMICIN. [Concomitant]
     Active Substance: GENTAMICIN
     Indication: BACTERIAL SEPSIS
  4. SPIRONOLACTONE. [Suspect]
     Active Substance: SPIRONOLACTONE
     Indication: DIURETIC THERAPY
     Dosage: 1.2 MG/KG/DAY
     Route: 048
  5. CARVEDILOL. [Interacting]
     Active Substance: CARVEDILOL
     Indication: BLOOD PRESSURE INCREASED
  6. TEICOPLANIN [Concomitant]
     Active Substance: TEICOPLANIN
     Indication: BACILLUS INFECTION
     Dosage: UNK
  7. GENTAMICIN. [Concomitant]
     Active Substance: GENTAMICIN
     Indication: BACILLUS INFECTION
     Dosage: UNK
  8. DIGOXIN. [Interacting]
     Active Substance: DIGOXIN
     Indication: CARDIAC DISORDER
     Dosage: 3 UG/KG/DAY (REFLECTING 50 % OF USUAL MAINTENANCE DOSE)
  9. FUROSEMID [Concomitant]
     Active Substance: FUROSEMIDE
     Indication: DIURETIC THERAPY
     Dosage: 1.6-2.5 MG/KG/DAY
     Route: 048
  10. TEICOPLANIN [Concomitant]
     Active Substance: TEICOPLANIN
     Indication: BACTERIAL SEPSIS

REACTIONS (5)
  - Arrhythmia [Recovered/Resolved]
  - Atrioventricular block first degree [Recovered/Resolved]
  - Atrioventricular block second degree [Recovered/Resolved]
  - Drug interaction [Recovered/Resolved]
  - Toxicity to various agents [Recovered/Resolved]
